FAERS Safety Report 9631178 (Version 2)
Quarter: 2014Q1

REPORT INFORMATION
  Report Type: Spontaneous
  Country: PT (occurrence: PT)
  Receive Date: 20131018
  Receipt Date: 20140304
  Transmission Date: 20141002
  Serious: Yes (Other)
  Sender: FDA-Public Use
  Company Number: PT-MPIJNJ-2013JNJ000609

PATIENT
  Sex: 0

DRUGS (3)
  1. VELCADE [Suspect]
     Indication: PLASMA CELL MYELOMA
     Dosage: 1 MG/M2, UNK
     Route: 058
  2. THALIDOMIDE [Concomitant]
     Dosage: 1 MG/M2, UNK
  3. DEXAMETHASONE [Concomitant]

REACTIONS (2)
  - Thrombosis [Not Recovered/Not Resolved]
  - Transaminases increased [Recovered/Resolved]
